FAERS Safety Report 6190245-5 (Version None)
Quarter: 2009Q2

REPORT INFORMATION
  Report Type: 
  Country: None (occurrence: None)
  Receive Date: 20090514
  Receipt Date: 20090512
  Transmission Date: 20091009
  Serious: Yes (Hospitalization)
  Sender: FDA-Public Use
  Company Number: LU-ABBOTT-09P-098-0501594-00

PATIENT
  Sex: Male
  Weight: 60 kg

DRUGS (2)
  1. HUMIRA [Suspect]
     Indication: CROHN'S DISEASE
     Dates: start: 20080320, end: 20090116
  2. MEDROL [Concomitant]
     Indication: CROHN'S DISEASE
     Dates: start: 20090112

REACTIONS (7)
  - APPENDICITIS [None]
  - GASTROINTESTINAL INFLAMMATION [None]
  - ILEAL PERFORATION [None]
  - ILEITIS [None]
  - INTESTINAL FISTULA [None]
  - PERITONITIS [None]
  - SMALL INTESTINAL STENOSIS [None]
